FAERS Safety Report 14789367 (Version 1)
Quarter: 2018Q2

REPORT INFORMATION
  Report Type: Spontaneous
  Country: GB (occurrence: GB)
  Receive Date: 20180423
  Receipt Date: 20180423
  Transmission Date: 20180711
  Serious: Yes (Hospitalization)
  Sender: FDA-Public Use
  Company Number: GB-ACCORD-065842

PATIENT
  Age: 50 Year
  Sex: Male

DRUGS (10)
  1. RAMIPRIL. [Suspect]
     Active Substance: RAMIPRIL
     Indication: PRODUCT USED FOR UNKNOWN INDICATION
  2. LANSOPRAZOLE. [Concomitant]
     Active Substance: LANSOPRAZOLE
  3. SIMVASTATIN. [Concomitant]
     Active Substance: SIMVASTATIN
  4. INDAPAMIDE/INDAPAMIDE HEMIHYDRATE [Concomitant]
  5. NAPROXEN. [Concomitant]
     Active Substance: NAPROXEN
  6. FUROSEMIDE. [Concomitant]
     Active Substance: FUROSEMIDE
  7. PREGABALIN. [Concomitant]
     Active Substance: PREGABALIN
  8. PARACETAMOL [Concomitant]
     Active Substance: ACETAMINOPHEN
  9. SALBUTAMOL [Concomitant]
     Active Substance: ALBUTEROL
  10. SYMBICORT [Concomitant]
     Active Substance: BUDESONIDE\FORMOTEROL FUMARATE DIHYDRATE

REACTIONS (1)
  - Anaphylactic reaction [Recovered/Resolved]
